FAERS Safety Report 16160764 (Version 1)
Quarter: 2019Q2

REPORT INFORMATION
  Report Type: Spontaneous
  Country: US (occurrence: US)
  Receive Date: 20190405
  Receipt Date: 20190405
  Transmission Date: 20190711
  Serious: No
  Sender: FDA-Public Use
  Company Number: US-TEVA-2019-US-1032326

PATIENT
  Sex: Female

DRUGS (1)
  1. CICLOSPORIN MODIFIED [Suspect]
     Active Substance: CYCLOSPORINE

REACTIONS (4)
  - Muscular weakness [Unknown]
  - Fatigue [Unknown]
  - Product formulation issue [Unknown]
  - Weight increased [Unknown]
